FAERS Safety Report 8209950-1 (Version None)
Quarter: 2012Q1

REPORT INFORMATION
  Report Type: 
  Country: None (occurrence: None)
  Receive Date: 20120314
  Receipt Date: 20120207
  Transmission Date: 20120608
  Serious: No
  Sender: FDA-Public Use
  Company Number: US-ASTRAZENECA-2010SE41361

PATIENT
  Age: 60 Year
  Sex: Female

DRUGS (10)
  1. LOVAZA [Concomitant]
  2. ZETIA [Concomitant]
  3. TOPROL-XL [Suspect]
     Route: 048
  4. HC [Concomitant]
  5. TOPROL-XL [Suspect]
     Route: 048
  6. CRESTOR [Concomitant]
  7. CELEBREX [Concomitant]
  8. CYMBALTA [Concomitant]
  9. TREXIMET [Concomitant]
  10. ZOLPIDEM [Concomitant]

REACTIONS (4)
  - HYPERTENSION [None]
  - MALAISE [None]
  - NAUSEA [None]
  - DRUG HYPERSENSITIVITY [None]
